FAERS Safety Report 7124107-3 (Version None)
Quarter: 2010Q4

REPORT INFORMATION
  Report Type: 
  Country: None (occurrence: None)
  Receive Date: 20101126
  Receipt Date: 20101122
  Transmission Date: 20110411
  Serious: Yes (Death)
  Sender: FDA-Public Use
  Company Number: PHHY2010CA78651

PATIENT
  Sex: Male

DRUGS (6)
  1. CLOZARIL [Suspect]
     Indication: SCHIZOPHRENIA
     Dosage: 250 MG DAILY
     Dates: start: 20071113
  2. SINEMET [Concomitant]
  3. INDERAL [Concomitant]
  4. SEROQUEL [Concomitant]
  5. VALPROIC ACID [Concomitant]
  6. AEROSOL [Concomitant]

REACTIONS (1)
  - PNEUMONIA [None]
